FAERS Safety Report 16476590 (Version 1)
Quarter: 2019Q2

REPORT INFORMATION
  Report Type: Spontaneous
  Country: PT (occurrence: PT)
  Receive Date: 20190626
  Receipt Date: 20190626
  Transmission Date: 20190711
  Serious: Yes (Hospitalization)
  Sender: FDA-Public Use
  Company Number: PT-MYLANLABS-2019M1058201

PATIENT
  Age: 13 Year
  Sex: Female

DRUGS (1)
  1. ENALAPRIL [Suspect]
     Active Substance: ENALAPRIL
     Indication: HEART DISEASE CONGENITAL
     Dosage: 5 MILLIGRAM, QOD
     Route: 065

REACTIONS (2)
  - Meningitis bacterial [Recovering/Resolving]
  - Off label use [Unknown]
